FAERS Safety Report 5394686-5 (Version None)
Quarter: 2007Q3

REPORT INFORMATION
  Report Type: 
  Country: None (occurrence: None)
  Receive Date: 20070720
  Receipt Date: 20070709
  Transmission Date: 20080115
  Serious: Yes (Life-Threatening, Hospitalization, Other)
  Sender: FDA-Public Use
  Company Number: POMP-11058

PATIENT
  Age: 232 Day
  Sex: Male
  Weight: 5.9 kg

DRUGS (17)
  1. MYOZYME [Suspect]
     Indication: GLYCOGEN STORAGE DISEASE TYPE II
     Dosage: 10 MG/KG QWKS IV
     Route: 042
     Dates: start: 20070604, end: 20070622
  2. MYOZYME [Suspect]
     Indication: GLYCOGEN STORAGE DISEASE TYPE II
     Dosage: 20 MG/KG Q2WKS IV
     Route: 042
     Dates: start: 20070224, end: 20070501
  3. METHOTREXATE [Concomitant]
  4. CAPTOPRIL [Concomitant]
  5. FUROSEMIDE [Concomitant]
  6. DIGOXIN [Concomitant]
  7. POTASSIUM CHLORIDE [Concomitant]
  8. CALCIUM GLUBIONATE [Concomitant]
  9. PROCRIT [Concomitant]
  10. BENADRYL [Concomitant]
  11. TYLENOL (CAPLET) [Concomitant]
  12. FERROUS SULFATE [Concomitant]
  13. ZINC OXIDE [Concomitant]
  14. LACTOBACILLUS [Concomitant]
  15. MCT OIL [Concomitant]
  16. NYSTATIN [Concomitant]
  17. ASPIRIN [Concomitant]

REACTIONS (16)
  - ALANINE AMINOTRANSFERASE INCREASED [None]
  - ASPARTATE AMINOTRANSFERASE INCREASED [None]
  - BRONCHIAL HYPERREACTIVITY [None]
  - CANDIDIASIS [None]
  - CENTRAL LINE INFECTION [None]
  - ENZYME INHIBITION [None]
  - EOSINOPHILIA [None]
  - HYPOTENSION [None]
  - INFLUENZA SEROLOGY POSITIVE [None]
  - INFUSION RELATED REACTION [None]
  - RENAL FAILURE ACUTE [None]
  - RESPIRATORY SYNCYTIAL VIRUS INFECTION [None]
  - STAPHYLOCOCCAL INFECTION [None]
  - TACHYCARDIA [None]
  - TACHYPNOEA [None]
  - TYPE III IMMUNE COMPLEX MEDIATED REACTION [None]
